FAERS Safety Report 6997615-3 (Version None)
Quarter: 2010Q3

REPORT INFORMATION
  Report Type: 
  Country: None (occurrence: None)
  Receive Date: 20100918
  Receipt Date: 20091112
  Transmission Date: 20110219
  Serious: No
  Sender: FDA-Public Use
  Company Number: US-WYE-H12160709

PATIENT
  Sex: Female
  Weight: 95.34 kg

DRUGS (8)
  1. PRISTIQ [Suspect]
     Indication: DEPRESSION
     Route: 048
     Dates: start: 20090601
  2. TYLENOL [Concomitant]
  3. ACETYLSALICYLIC ACID [Concomitant]
  4. INDAPAMIDE [Concomitant]
  5. OMEPRAZOLE [Concomitant]
  6. ROPINIROLE [Concomitant]
  7. SIMCOR [Concomitant]
  8. METOPROLOL [Concomitant]

REACTIONS (1)
  - WEIGHT INCREASED [None]
